FAERS Safety Report 25770152 (Version 2)
Quarter: 2025Q4

REPORT INFORMATION
  Report Type: Report from Study
  Country: US (occurrence: US)
  Receive Date: 20250907
  Receipt Date: 20251016
  Transmission Date: 20260118
  Serious: No
  Sender: BOEHRINGER INGELHEIM
  Company Number: US-BoehringerIngelheim-2025-BI-093761

PATIENT
  Age: 58 Year
  Sex: Female

DRUGS (1)
  1. HERNEXEOS [Suspect]
     Active Substance: ZONGERTINIB
     Indication: Lung neoplasm malignant
     Dates: start: 20250828, end: 20250929

REACTIONS (4)
  - Diarrhoea [Not Recovered/Not Resolved]
  - Abdominal discomfort [Not Recovered/Not Resolved]
  - Diarrhoea [Recovered/Resolved]
  - Epistaxis [Recovered/Resolved]

NARRATIVE: CASE EVENT DATE: 20250901
